APPROVED DRUG PRODUCT: RISEDRONATE SODIUM
Active Ingredient: RISEDRONATE SODIUM
Strength: 30MG
Dosage Form/Route: TABLET;ORAL
Application: A200477 | Product #002
Applicant: PHARMOBEDIENT CONSULTING LLC
Approved: Nov 30, 2015 | RLD: No | RS: No | Type: DISCN